FAERS Safety Report 17996343 (Version 1)
Quarter: 2020Q3

REPORT INFORMATION
  Report Type: Spontaneous
  Country: FR (occurrence: FR)
  Receive Date: 20200708
  Receipt Date: 20200708
  Transmission Date: 20201103
  Serious: Yes (Death)
  Sender: FDA-Public Use
  Company Number: FR-INCYTE CORPORATION-2020IN006152

PATIENT

DRUGS (4)
  1. JAKAVI [Suspect]
     Active Substance: RUXOLITINIB
     Indication: PRODUCT USED FOR UNKNOWN INDICATION
     Dosage: 5 MILLIGRAM / 12 HOURS
     Route: 065
     Dates: start: 20180730
  2. LETERMOVIR [Suspect]
     Active Substance: LETERMOVIR
     Indication: ANTIVIRAL PROPHYLAXIS
     Dosage: 240 MG, QD
     Route: 048
     Dates: start: 20180927, end: 20181228
  3. CORTANCYL [Suspect]
     Active Substance: PREDNISONE
     Indication: PRODUCT USED FOR UNKNOWN INDICATION
     Dosage: UNK, PROGRESSIVE DECREASE
     Route: 065
     Dates: start: 201712
  4. MODIGRAF [Suspect]
     Active Substance: TACROLIMUS
     Indication: PRODUCT USED FOR UNKNOWN INDICATION
     Dosage: 1 OT, Q12H (EVERY 12 HOURS (CURATIVE DOSE)
     Route: 065
     Dates: start: 201712

REACTIONS (7)
  - Cytomegalovirus infection reactivation [Fatal]
  - Death [Fatal]
  - Toxoplasmosis [Fatal]
  - Nocardiosis [Fatal]
  - Treatment failure [Fatal]
  - Incorrect dose administered [Fatal]
  - Pathogen resistance [Fatal]

NARRATIVE: CASE EVENT DATE: 20181227
